FAERS Safety Report 24002715 (Version 1)
Quarter: 2024Q2

REPORT INFORMATION
  Report Type: Spontaneous
  Country: US (occurrence: US)
  Receive Date: 20240624
  Receipt Date: 20240624
  Transmission Date: 20240716
  Serious: No
  Sender: FDA-Public Use
  Company Number: US-MLMSERVICE-20230703-4386576-1

PATIENT
  Age: 62 Year
  Sex: Female

DRUGS (3)
  1. GABAPENTIN [Suspect]
     Active Substance: GABAPENTIN
     Indication: Fracture pain
     Dosage: UNK
     Route: 065
  2. LIDOCAINE [Concomitant]
     Active Substance: LIDOCAINE
     Indication: Fracture pain
     Dosage: UNK
     Route: 062
  3. OXYCODONE [Concomitant]
     Active Substance: OXYCODONE\OXYCODONE HYDROCHLORIDE
     Indication: Fracture pain
     Dosage: UNK
     Route: 065

REACTIONS (1)
  - Off label use [Unknown]
